FAERS Safety Report 7676534-3 (Version None)
Quarter: 2011Q3

REPORT INFORMATION
  Report Type: 
  Country: None (occurrence: None)
  Receive Date: 20110811
  Receipt Date: 20110729
  Transmission Date: 20111222
  Serious: Yes (Hospitalization)
  Sender: FDA-Public Use
  Company Number: CA-JNJFOC-20110603714

PATIENT
  Sex: Female
  Weight: 68.49 kg

DRUGS (25)
  1. REMICADE [Suspect]
     Route: 042
     Dates: start: 20100401
  2. SYNTHROID [Concomitant]
     Indication: PRODUCT USED FOR UNKNOWN INDICATION
     Dosage: ^1/2 TAB ONCE DAILY^
     Route: 048
  3. MESALAMINE [Concomitant]
     Dates: end: 20110201
  4. LORAZEPAM [Concomitant]
     Route: 048
  5. REMICADE [Suspect]
     Indication: CROHN'S DISEASE
     Route: 042
  6. ASAPHEN [Concomitant]
     Indication: PRODUCT USED FOR UNKNOWN INDICATION
     Route: 048
  7. AZATHIOPRINE [Concomitant]
     Indication: PRODUCT USED FOR UNKNOWN INDICATION
     Route: 048
  8. PROCHLORPERAZINE [Concomitant]
     Indication: PRODUCT USED FOR UNKNOWN INDICATION
     Dosage: EVERY 6 HOURS AS NECESSARY
  9. LYRICA [Concomitant]
     Dosage: USE AS NECESSARY ONLY
  10. VITAMIN D [Concomitant]
     Indication: PRODUCT USED FOR UNKNOWN INDICATION
  11. FLOVENT HFA [Concomitant]
     Indication: PRODUCT USED FOR UNKNOWN INDICATION
  12. CALCIUM CARBONATE [Concomitant]
     Indication: PRODUCT USED FOR UNKNOWN INDICATION
  13. MESALAMINE [Concomitant]
     Indication: PRODUCT USED FOR UNKNOWN INDICATION
     Dosage: DOSAGE DECREASED FEB-2011, NEW DOSAGE UNKNOWN.
     Dates: start: 20110201
  14. MESALAMINE [Concomitant]
     Indication: PRODUCT USED FOR UNKNOWN INDICATION
     Dosage: ^2GM/60GM^ RECTAL SUSPENSION 1 DAILY AS NECESSARY
     Route: 054
  15. NITROGLYCERIN SPRAY [Concomitant]
     Indication: DISCOMFORT
     Dosage: USED APPROXIMATELY ONCE PER MONTH FOR (ILLEGIBLE) STERNUM
     Route: 060
  16. MESALAMINE [Concomitant]
     Route: 048
  17. ALBUTEROL [Concomitant]
     Indication: PRODUCT USED FOR UNKNOWN INDICATION
  18. BROMAZEPAM [Concomitant]
     Indication: PRODUCT USED FOR UNKNOWN INDICATION
     Dosage: 1.5 MG TO 3.0 MG AT HOUR OF SLEEP
     Route: 065
  19. REMICADE [Suspect]
     Route: 042
  20. SALOFALK (5-ASA) [Concomitant]
     Indication: PRODUCT USED FOR UNKNOWN INDICATION
  21. LYRICA [Concomitant]
     Indication: PRODUCT USED FOR UNKNOWN INDICATION
     Dosage: USED AS NECESSARY ONLY
  22. REMICADE [Suspect]
     Indication: COLITIS ULCERATIVE
     Route: 042
     Dates: start: 20100401
  23. SIMVASTATIN [Concomitant]
     Indication: PRODUCT USED FOR UNKNOWN INDICATION
     Route: 048
  24. EPINEPHRINE [Suspect]
     Indication: PRODUCT USED FOR UNKNOWN INDICATION
  25. PANTOPRAZOLE SODIUM [Concomitant]
     Dosage: DOSE: 40 (UNITS UNSPECIFIED)
     Route: 048

REACTIONS (11)
  - OXYGEN SATURATION DECREASED [None]
  - CARDIAC ARREST [None]
  - ANAPHYLACTIC REACTION [None]
  - ARTHRALGIA [None]
  - BRADYCARDIA [None]
  - ALOPECIA [None]
  - VENTRICULAR FIBRILLATION [None]
  - HAIR TEXTURE ABNORMAL [None]
  - ACUTE CORONARY SYNDROME [None]
  - INFUSION RELATED REACTION [None]
  - NAUSEA [None]
